FAERS Safety Report 25076934 (Version 2)
Quarter: 2025Q1

REPORT INFORMATION
  Report Type: Spontaneous
  Country: US (occurrence: US)
  Receive Date: 20250314
  Receipt Date: 20250322
  Transmission Date: 20250408
  Serious: Yes (Other)
  Sender: ABBVIE
  Company Number: US-ABBVIE-6177541

PATIENT
  Sex: Female

DRUGS (3)
  1. LINACLOTIDE [Suspect]
     Active Substance: LINACLOTIDE
     Indication: Constipation
     Route: 048
     Dates: start: 202412, end: 20250220
  2. PAXLOVID [Suspect]
     Active Substance: NIRMATRELVIR\RITONAVIR
     Indication: COVID-19
     Route: 065
     Dates: start: 20250211, end: 20250215
  3. BENADRYL [Suspect]
     Active Substance: DIPHENHYDRAMINE HYDROCHLORIDE
     Indication: Product used for unknown indication
     Route: 048
     Dates: start: 20250227

REACTIONS (17)
  - Deafness [Unknown]
  - Blister [Unknown]
  - Rash pruritic [Recovered/Resolved]
  - Rash papular [Recovering/Resolving]
  - Ear swelling [Unknown]
  - Feeling hot [Unknown]
  - Ear pain [Unknown]
  - Urticaria [Recovering/Resolving]
  - Rash morbilliform [Recovering/Resolving]
  - Drug eruption [Recovering/Resolving]
  - Constipation [Unknown]
  - Thinking abnormal [Unknown]
  - Respiratory rate decreased [Unknown]
  - Cardiac flutter [Unknown]
  - Gastrointestinal disorder [Unknown]
  - Eczema [Unknown]
  - Burning sensation [Unknown]

NARRATIVE: CASE EVENT DATE: 20250101
